FAERS Safety Report 18957214 (Version 1)
Quarter: 2021Q1

REPORT INFORMATION
  Report Type: Spontaneous
  Country: US (occurrence: US)
  Receive Date: 20210302
  Receipt Date: 20210302
  Transmission Date: 20210420
  Serious: No
  Sender: FDA-Public Use
  Company Number: US-AMGEN-USASP2021031703

PATIENT
  Sex: Male

DRUGS (4)
  1. ALIMTA [Concomitant]
     Active Substance: PEMETREXED DISODIUM
  2. CALCIUM [Concomitant]
     Active Substance: CALCIUM
  3. XGEVA [Suspect]
     Active Substance: DENOSUMAB
     Indication: PRODUCT USED FOR UNKNOWN INDICATION
     Dosage: UNK/8 WEEKS/4WEEEKS
     Route: 065
  4. VIT D [COLECALCIFEROL] [Concomitant]

REACTIONS (2)
  - Blood creatinine increased [Unknown]
  - Off label use [Unknown]
